FAERS Safety Report 12720084 (Version 2)
Quarter: 2016Q4

REPORT INFORMATION
  Report Type: Spontaneous
  Country: US (occurrence: US)
  Receive Date: 20160907
  Receipt Date: 20161014
  Transmission Date: 20170207
  Serious: Yes (Death, Hospitalization, Other)
  Sender: FDA-Public Use
  Company Number: US-009507513-1609USA001478

PATIENT
  Age: 74 Year
  Sex: Male

DRUGS (2)
  1. KEYTRUDA [Suspect]
     Active Substance: PEMBROLIZUMAB
     Dosage: 3 MG/KG, Q3W
     Route: 042
     Dates: start: 20160728, end: 20160728
  2. KEYTRUDA [Suspect]
     Active Substance: PEMBROLIZUMAB
     Indication: METASTATIC MALIGNANT MELANOMA
     Dosage: 3 MG/KG, Q3W
     Route: 042
     Dates: start: 20160707, end: 20160707

REACTIONS (8)
  - Mastitis [Unknown]
  - Myocarditis [Unknown]
  - Urinary tract infection [Unknown]
  - Eyelid ptosis [Unknown]
  - Lung disorder [Unknown]
  - Feeling abnormal [Unknown]
  - Death [Fatal]
  - Myasthenia gravis [Unknown]

NARRATIVE: CASE EVENT DATE: 2016
